FAERS Safety Report 7302524-6 (Version None)
Quarter: 2011Q1

REPORT INFORMATION
  Report Type: 
  Country: None (occurrence: None)
  Receive Date: 20110218
  Receipt Date: 20110216
  Transmission Date: 20110831
  Serious: No
  Sender: FDA-Public Use
  Company Number: US-PFIZER INC-2011035592

PATIENT
  Sex: Female
  Weight: 86 kg

DRUGS (8)
  1. LYRICA [Suspect]
     Indication: PAIN
     Dosage: 25MG DAILY
     Route: 048
     Dates: start: 20101230
  2. BACLOFEN [Concomitant]
     Indication: MUSCLE RELAXANT THERAPY
     Dosage: 10 MG, 1X/DAY
  3. ESTRADIOL [Concomitant]
     Indication: HORMONE REPLACEMENT THERAPY
     Dosage: 0.5 MG, UNK
  4. LYRICA [Suspect]
     Indication: FIBROMYALGIA
     Dosage: 50MG AND 75MG
     Route: 048
  5. SYNTHROID [Concomitant]
     Indication: HYPOTHYROIDISM
     Dosage: 0.375 MG, ALTERNATE DAY
     Route: 048
  6. AMBIEN [Concomitant]
     Indication: INSOMNIA
     Dosage: 12.5 MG, 1X/DAY
     Route: 048
  7. METOPROLOL [Concomitant]
     Indication: HYPERTENSION
     Dosage: 20 MG, 1X/DAY
  8. LYRICA [Suspect]
     Indication: MYOFASCIAL SPASM

REACTIONS (5)
  - NASOPHARYNGITIS [None]
  - NASAL CONGESTION [None]
  - WEIGHT INCREASED [None]
  - DRUG INEFFECTIVE [None]
  - INTENTIONAL DRUG MISUSE [None]
